FAERS Safety Report 8220563-8 (Version None)
Quarter: 2012Q1

REPORT INFORMATION
  Report Type: 
  Country: None (occurrence: None)
  Receive Date: 20120320
  Receipt Date: 20120307
  Transmission Date: 20120608
  Serious: Yes (Other)
  Sender: FDA-Public Use
  Company Number: US-COVIDIEN/TYCO HEALTHCARE/MALLINCKRODT-T201201024

PATIENT
  Age: 39 Year
  Sex: Male

DRUGS (8)
  1. VALPROATE SODIUM [Suspect]
     Indication: AGGRESSION
     Dosage: 250 MG TID
     Route: 048
  2. LORAZEPAM [Concomitant]
     Dosage: 1 MG HS ON DAY 2
     Route: 048
  3. LORAZEPAM [Concomitant]
     Dosage: 2 MG AT 4:30PM AND 2 MG HS ON DAY 3
     Route: 048
  4. ARIPIPRAZOLE [Suspect]
     Dosage: 7.5 MG Q HS, INCREASED UPON ADMISSION
     Route: 048
  5. LORAZEPAM [Concomitant]
     Indication: ANXIETY
     Dosage: 3 MG HS ON DAY 1
     Route: 048
  6. TEMAZEPAM [Suspect]
     Indication: PRODUCT USED FOR UNKNOWN INDICATION
     Dosage: 30 MG HS
     Route: 048
  7. ARIPIPRAZOLE [Suspect]
     Indication: PSYCHOTIC DISORDER
     Dosage: 2.5 MG BID FOR 22 DAYS
     Route: 048
  8. DOXYCYCLINE [Suspect]
     Indication: PRODUCT USED FOR UNKNOWN INDICATION
     Dosage: 100 MG, BID FOR 22 DAYS
     Route: 048

REACTIONS (3)
  - CATATONIA [None]
  - WITHDRAWAL SYNDROME [None]
  - BLOOD CREATINE PHOSPHOKINASE INCREASED [None]
